FAERS Safety Report 10080823 (Version 1)
Quarter: 2014Q2

REPORT INFORMATION
  Report Type: Spontaneous
  Country: US (occurrence: None)
  Receive Date: 20140414
  Receipt Date: 20140414
  Transmission Date: 20141212
  Serious: Yes (Hospitalization)
  Sender: FDA-Public Use
  Company Number: MED14-101

PATIENT
  Age: 72 Year
  Sex: Male
  Weight: 117.94 kg

DRUGS (1)
  1. SUCRAID [Suspect]
     Indication: SUCRASE-ISOMALTASE DEFICIENCY
     Dosage: 2 ML MEAL/SNACK
     Route: 048
     Dates: start: 20140310, end: 20140326

REACTIONS (4)
  - Dyspnoea [None]
  - Chest discomfort [None]
  - No therapeutic response [None]
  - Therapy cessation [None]
